FAERS Safety Report 20022842 (Version 2)
Quarter: 2022Q1

REPORT INFORMATION
  Report Type: Spontaneous
  Country: US (occurrence: None)
  Receive Date: 20211102
  Receipt Date: 20220119
  Transmission Date: 20220423
  Serious: Yes (Hospitalization)
  Sender: FDA-Public Use
  Company Number: US-ROCHE-2949275

PATIENT
  Age: 74 Year
  Sex: Female

DRUGS (2)
  1. ESBRIET [Suspect]
     Active Substance: PIRFENIDONE
     Indication: Idiopathic pulmonary fibrosis
     Dosage: 2 TABLETS TWICE DAILY, ONGOING-YES
     Route: 048
     Dates: start: 20190130
  2. PREDNISONE [Concomitant]
     Active Substance: PREDNISONE

REACTIONS (5)
  - Bronchitis [Unknown]
  - Pneumonia [Unknown]
  - Insomnia [Unknown]
  - Decreased appetite [Unknown]
  - Dry mouth [Unknown]

NARRATIVE: CASE EVENT DATE: 20211029
